FAERS Safety Report 9415509 (Version 3)
Quarter: 2013Q4

REPORT INFORMATION
  Report Type: Spontaneous
  Country: US (occurrence: US)
  Receive Date: 20130723
  Receipt Date: 20131114
  Transmission Date: 20140711
  Serious: Yes (Hospitalization, Congenital Anomaly, Other)
  Sender: FDA-Public Use
  Company Number: US-PFIZER INC-2013212830

PATIENT
  Sex: Female

DRUGS (6)
  1. SERTRALINE HCL [Suspect]
     Indication: AFFECTIVE DISORDER
  2. ZOLOFT [Suspect]
     Indication: ANXIETY
     Dosage: UNK
     Route: 064
  3. ZOLOFT [Suspect]
     Indication: DEPRESSION
  4. ZOLOFT [Suspect]
     Indication: AFFECTIVE DISORDER
  5. SERTRALINE HCL [Suspect]
     Indication: ANXIETY
     Dosage: UNK
     Route: 064
  6. SERTRALINE HCL [Suspect]
     Indication: DEPRESSION

REACTIONS (3)
  - Maternal exposure during pregnancy [Unknown]
  - Laryngeal cleft [Unknown]
  - Congenital anomaly [Unknown]
